FAERS Safety Report 20333325 (Version 2)
Quarter: 2022Q1

REPORT INFORMATION
  Report Type: Spontaneous
  Country: ES (occurrence: ES)
  Receive Date: 20220113
  Receipt Date: 20220204
  Transmission Date: 20220423
  Serious: Yes (Other)
  Sender: FDA-Public Use
  Company Number: ES-AMGEN-ESPSP2021208297

PATIENT
  Age: 59 Year
  Sex: Male

DRUGS (5)
  1. ADALIMUMAB [Suspect]
     Active Substance: ADALIMUMAB
     Indication: Psoriasis
     Dosage: UNK
     Route: 065
     Dates: start: 2017, end: 2019
  2. APREMILAST [Suspect]
     Active Substance: APREMILAST
     Indication: Psoriasis
     Dosage: UNK
     Route: 065
     Dates: start: 2019, end: 2019
  3. IXEKIZUMAB [Suspect]
     Active Substance: IXEKIZUMAB
     Indication: Psoriasis
     Dosage: 80 MILLIGRAM, Q2W
     Route: 065
     Dates: start: 2019
  4. IXEKIZUMAB [Suspect]
     Active Substance: IXEKIZUMAB
     Indication: Laryngeal squamous cell carcinoma
     Dosage: 160 MILLIGRAM (ON DAY 0)
     Route: 065
     Dates: start: 201911
  5. CISPLATIN [Concomitant]
     Active Substance: CISPLATIN
     Indication: Laryngeal squamous cell carcinoma
     Dosage: 3 CYCLES
     Dates: start: 2019

REACTIONS (6)
  - Rebound effect [Recovered/Resolved]
  - Laryngeal cancer [Recovered/Resolved]
  - Laryngeal oedema [Unknown]
  - Psoriasis [Recovered/Resolved]
  - Drug ineffective [Unknown]
  - Off label use [Unknown]

NARRATIVE: CASE EVENT DATE: 20190101
